FAERS Safety Report 16441774 (Version 2)
Quarter: 2019Q2

REPORT INFORMATION
  Report Type: Report from Study
  Country: None (occurrence: US)
  Receive Date: 20190617
  Receipt Date: 20190618
  Transmission Date: 20190711
  Serious: No
  Sender: FDA-Public Use
  Company Number: US-US WORLDMEDS, LLC-USW201806-001001

PATIENT
  Age: 64 Year
  Sex: Female

DRUGS (3)
  1. TIGAN [Suspect]
     Active Substance: TRIMETHOBENZAMIDE HYDROCHLORIDE
  2. APOKYN [Suspect]
     Active Substance: APOMORPHINE HYDROCHLORIDE
     Indication: PARKINSON^S DISEASE
     Route: 058
  3. APOKYN [Suspect]
     Active Substance: APOMORPHINE HYDROCHLORIDE
     Route: 058

REACTIONS (2)
  - Nausea [Recovered/Resolved]
  - Vomiting [Recovered/Resolved]

NARRATIVE: CASE EVENT DATE: 20180415
